FAERS Safety Report 7732162-2 (Version None)
Quarter: 2011Q3

REPORT INFORMATION
  Report Type: 
  Country: None (occurrence: None)
  Receive Date: 20110906
  Receipt Date: 20110831
  Transmission Date: 20111222
  Serious: Yes (Hospitalization)
  Sender: FDA-Public Use
  Company Number: BE-PFIZER INC-2011202736

PATIENT
  Age: 41 Year
  Sex: Male

DRUGS (5)
  1. MS CONTIN [Concomitant]
     Indication: PAIN
     Dosage: 10 MG, AS NEEDED
     Dates: start: 20110518, end: 20110705
  2. OXYCONTIN [Concomitant]
     Indication: PAIN
     Dosage: 10 MG, 2X/DAY
     Route: 048
     Dates: start: 20110311
  3. SUTENT [Suspect]
     Indication: ANGIOSARCOMA
     Dosage: 37.5 MG, 1X/DAY
     Route: 048
     Dates: start: 20100712
  4. LITICAN [Concomitant]
     Dosage: UNK
  5. OMEPRAZOLE [Concomitant]
     Dosage: 20 MG, 1X/DAY
     Route: 048

REACTIONS (2)
  - PAIN [None]
  - GENERAL PHYSICAL HEALTH DETERIORATION [None]
